FAERS Safety Report 16670114 (Version 1)
Quarter: 2019Q3

REPORT INFORMATION
  Report Type: Spontaneous
  Country: US (occurrence: US)
  Receive Date: 20190805
  Receipt Date: 20190805
  Transmission Date: 20191004
  Serious: No
  Sender: FDA-Public Use
  Company Number: US-ROCHE-2206971

PATIENT

DRUGS (4)
  1. HERCEPTIN [Suspect]
     Active Substance: TRASTUZUMAB
     Indication: LUNG NEOPLASM MALIGNANT
  2. PERJETA [Suspect]
     Active Substance: PERTUZUMAB
     Indication: LUNG NEOPLASM MALIGNANT
  3. PERJETA [Suspect]
     Active Substance: PERTUZUMAB
     Indication: BRONCHIAL CARCINOMA
     Dosage: FORM STRENGTH:30MG/ML
     Route: 042
  4. HERCEPTIN [Suspect]
     Active Substance: TRASTUZUMAB
     Indication: BRONCHIAL CARCINOMA
     Route: 042

REACTIONS (3)
  - Intentional product use issue [Unknown]
  - Off label use [Unknown]
  - No adverse event [Unknown]
